FAERS Safety Report 8380782-7 (Version None)
Quarter: 2012Q2

REPORT INFORMATION
  Report Type: 
  Country: None (occurrence: None)
  Receive Date: 20120523
  Receipt Date: 20120517
  Transmission Date: 20120825
  Serious: Yes (Other)
  Sender: FDA-Public Use
  Company Number: US-ROCHE-1046845

PATIENT
  Sex: Female

DRUGS (3)
  1. PEGASYS [Suspect]
     Indication: HEPATITIS C
     Dates: start: 20120302
  2. TELAPREVIR [Suspect]
     Indication: HEPATITIS C
     Dates: start: 20120302
  3. RIBAVIRIN [Suspect]
     Indication: HEPATITIS C
     Dates: start: 20120302

REACTIONS (3)
  - EYE HAEMORRHAGE [None]
  - INSOMNIA [None]
  - DRUG DOSE OMISSION [None]
